FAERS Safety Report 9547049 (Version 1)
Quarter: 2013Q3

REPORT INFORMATION
  Report Type: Spontaneous
  Country: US (occurrence: None)
  Receive Date: 20130920
  Receipt Date: 20130920
  Transmission Date: 20140515
  Serious: Yes (Other)
  Sender: FDA-Public Use
  Company Number: 001598821A

PATIENT
  Age: 19 Year
  Sex: Male

DRUGS (2)
  1. PROACTIV+ SKIN EXFOLIATOR [Suspect]
     Indication: ACNE
     Dosage: TWICE DAILY DERMAL
     Dates: start: 20130820, end: 20130824
  2. PROACTIV+ PORE TARGETING TREATMENT [Suspect]
     Indication: ACNE
     Dosage: TWICE DAILY DERMAL
     Dates: start: 20130820, end: 20130824

REACTIONS (3)
  - Blister [None]
  - Urticaria [None]
  - Hypersensitivity [None]
